FAERS Safety Report 25094311 (Version 1)
Quarter: 2025Q1

REPORT INFORMATION
  Report Type: Spontaneous
  Country: US (occurrence: None)
  Receive Date: 20250318
  Receipt Date: 20250318
  Transmission Date: 20250409
  Serious: Yes (Hospitalization)
  Sender: FDA-CTU
  Company Number: None

PATIENT
  Age: 63 Year
  Sex: Female
  Weight: 60.75 kg

DRUGS (16)
  1. TICAGRELOR [Suspect]
     Active Substance: TICAGRELOR
     Indication: Myocardial infarction
     Dosage: OTHER QUANTITY : 60 TABLET(S);?FREQUENCY : TWICE A DAY;?
     Route: 048
     Dates: start: 20250116
  2. Estrogen creme [Concomitant]
  3. tirosant [Concomitant]
  4. Floticanse [Concomitant]
  5. dyclomine [Concomitant]
  6. Brilenta [Concomitant]
  7. CYANOCOBALAMIN\DEXPANTHENOL\NIACINAMIDE\PYRIDOXINE HYDROCHLORIDE\RIBOF [Concomitant]
     Active Substance: CYANOCOBALAMIN\DEXPANTHENOL\NIACINAMIDE\PYRIDOXINE HYDROCHLORIDE\RIBOFLAVIN 5^-PHOSPHATE SODIUM\THIA
  8. C [Concomitant]
  9. D [Concomitant]
  10. GLUCOSAMINE [Concomitant]
     Active Substance: GLUCOSAMINE
  11. eye vitamin [Concomitant]
  12. OMEGA 3 [Concomitant]
     Active Substance: CAPSAICIN
  13. MAGNESIUM [Concomitant]
     Active Substance: MAGNESIUM
  14. tart cherry [Concomitant]
  15. CALCIUM [Concomitant]
     Active Substance: CALCIUM
  16. ALLEGRA [Concomitant]
     Active Substance: FEXOFENADINE HYDROCHLORIDE

REACTIONS (13)
  - Anxiety [None]
  - Dizziness [None]
  - Blood pressure increased [None]
  - Fatigue [None]
  - Pain in extremity [None]
  - Muscle spasms [None]
  - Chills [None]
  - Neuropathy peripheral [None]
  - Feeling abnormal [None]
  - Vision blurred [None]
  - Pain in jaw [None]
  - Gastrointestinal pain [None]
  - Disturbance in attention [None]

NARRATIVE: CASE EVENT DATE: 20250222
